FAERS Safety Report 4592913-5 (Version None)
Quarter: 2005Q1

REPORT INFORMATION
  Report Type: 
  Country: None (occurrence: None)
  Receive Date: 20050228
  Receipt Date: 20041210
  Transmission Date: 20050727
  Serious: Yes (Death)
  Sender: FDA-Public Use
  Company Number: US-GLAXOSMITHKLINE-A0536851A

PATIENT
  Age: 48 Year
  Sex: Male
  Weight: 80 kg

DRUGS (3)
  1. EPZICOM [Suspect]
     Indication: HIV INFECTION
     Dosage: 1TAB PER DAY
     Route: 048
     Dates: start: 20041115, end: 20041202
  2. LEXIVA [Concomitant]
     Dosage: 700MG TWICE PER DAY
     Dates: start: 20041115, end: 20041202
  3. NORVIR [Concomitant]
     Dates: start: 20041115, end: 20041202

REACTIONS (4)
  - DEATH [None]
  - INFLUENZA LIKE ILLNESS [None]
  - PYREXIA [None]
  - RASH [None]
